FAERS Safety Report 20403468 (Version 2)
Quarter: 2022Q1

REPORT INFORMATION
  Report Type: Report from Study
  Country: US (occurrence: US)
  Receive Date: 20220131
  Receipt Date: 20220322
  Transmission Date: 20220423
  Serious: No
  Sender: FDA-Public Use
  Company Number: US-NOVARTISTESTPH-NVSC2022US019541

PATIENT
  Sex: Male

DRUGS (1)
  1. ENTRESTO [Suspect]
     Active Substance: SACUBITRIL\VALSARTAN
     Indication: Product used for unknown indication
     Dosage: 50 MG, BID, (SACUBITRIL 24MG, VALSARTAN 26MG)
     Route: 048

REACTIONS (3)
  - Dyspnoea [Unknown]
  - Pain [Unknown]
  - Product dose omission issue [Unknown]
